FAERS Safety Report 9086766 (Version 1)
Quarter: 2013Q1

REPORT INFORMATION
  Report Type: Report from Study
  Country: US (occurrence: US)
  Receive Date: 20130130
  Receipt Date: 20130130
  Transmission Date: 20140127
  Serious: No
  Sender: FDA-Public Use
  Company Number: US-ABBOTT-12P-163-0986195-00

PATIENT
  Age: 56 Year
  Sex: Female

DRUGS (6)
  1. HUMIRA [Suspect]
     Indication: PSORIASIS
     Route: 058
     Dates: start: 20120806, end: 20120924
  2. HUMIRA [Suspect]
     Indication: PSORIATIC ARTHROPATHY
  3. B12 [Concomitant]
     Indication: PERNICIOUS ANAEMIA
  4. ESTRACE [Concomitant]
     Indication: OESTROGEN REPLACEMENT THERAPY
     Route: 048
  5. VIT D [Concomitant]
     Indication: PSORIASIS
     Route: 048
  6. IMITREX [Concomitant]
     Indication: MIGRAINE

REACTIONS (1)
  - Fatigue [Not Recovered/Not Resolved]
